FAERS Safety Report 4574133-3 (Version None)
Quarter: 2005Q1

REPORT INFORMATION
  Report Type: 
  Country: None (occurrence: None)
  Receive Date: 20050208
  Receipt Date: 20041026
  Transmission Date: 20050727
  Serious: No
  Sender: FDA-Public Use
  Company Number: US-GLAXOSMITHKLINE-A0531295A

PATIENT
  Age: 57 Year
  Sex: Male

DRUGS (4)
  1. PAXIL [Suspect]
     Indication: DEPRESSION
     Dosage: 30MG PER DAY
     Route: 048
  2. ALTACE [Concomitant]
  3. PLAVIX [Concomitant]
  4. ZOCOR [Concomitant]

REACTIONS (2)
  - EJACULATION FAILURE [None]
  - SEXUAL DYSFUNCTION [None]
